FAERS Safety Report 5614279-1 (Version None)
Quarter: 2008Q1

REPORT INFORMATION
  Report Type: 
  Country: None (occurrence: None)
  Receive Date: 20080205
  Receipt Date: 20080124
  Transmission Date: 20080703
  Serious: Yes (Other)
  Sender: FDA-Public Use
  Company Number: ES-PFIZER INC-2008009435

PATIENT
  Age: 48 Year
  Sex: Female

DRUGS (2)
  1. CHANTIX [Suspect]
     Indication: SMOKING CESSATION THERAPY
     Route: 048
     Dates: start: 20080115, end: 20080124
  2. ACETYLCYSTEINE [Concomitant]

REACTIONS (4)
  - DIZZINESS [None]
  - HAEMATEMESIS [None]
  - SOMNOLENCE [None]
  - VOMITING [None]
